FAERS Safety Report 5623563-7 (Version None)
Quarter: 2008Q1

REPORT INFORMATION
  Report Type: 
  Country: None (occurrence: None)
  Receive Date: 20080212
  Receipt Date: 20080130
  Transmission Date: 20080703
  Serious: Yes (Other)
  Sender: FDA-Public Use
  Company Number: CA-ELI_LILLY_AND_COMPANY-CA200801006369

PATIENT
  Age: 17 Year
  Sex: Female
  Weight: 60.7 kg

DRUGS (3)
  1. STRATTERA [Suspect]
     Indication: ATTENTION DEFICIT/HYPERACTIVITY DISORDER
     Dosage: 30 MG, UNK
     Dates: start: 20070807, end: 20070812
  2. STRATTERA [Suspect]
     Dosage: 45 MG, UNK
     Dates: start: 20070813, end: 20070818
  3. STRATTERA [Suspect]
     Dosage: 70 MG, UNK
     Dates: start: 20070819

REACTIONS (8)
  - ANKLE FRACTURE [None]
  - CEREBRAL CYST [None]
  - DROP ATTACKS [None]
  - ELECTROENCEPHALOGRAM ABNORMAL [None]
  - EMOTIONAL DISTRESS [None]
  - INSOMNIA [None]
  - LOSS OF CONSCIOUSNESS [None]
  - NEURALGIA [None]
